FAERS Safety Report 25050380 (Version 1)
Quarter: 2025Q1

REPORT INFORMATION
  Report Type: Spontaneous
  Country: US (occurrence: US)
  Receive Date: 20250307
  Receipt Date: 20250307
  Transmission Date: 20250408
  Serious: Yes (Other)
  Sender: SANOFI AVENTIS
  Company Number: US-SA-2025SA068399

PATIENT
  Sex: Male

DRUGS (27)
  1. AUBAGIO [Suspect]
     Active Substance: TERIFLUNOMIDE
     Indication: Multiple sclerosis
     Dosage: 14 MG, QD
     Route: 048
  2. FLUTICASONE PROPIONATE [Concomitant]
     Active Substance: FLUTICASONE PROPIONATE
  3. FUROSEMIDE [Concomitant]
     Active Substance: FUROSEMIDE
  4. LEVOTHYROXINE [Concomitant]
     Active Substance: LEVOTHYROXINE
  5. LINZESS [Concomitant]
     Active Substance: LINACLOTIDE
  6. POTASSIUM [Concomitant]
     Active Substance: POTASSIUM
  7. TEGRETOL [Concomitant]
     Active Substance: CARBAMAZEPINE
  8. CARBAMAZEPINE [Concomitant]
     Active Substance: CARBAMAZEPINE
  9. TOLTERODINE TARTRATE [Concomitant]
     Active Substance: TOLTERODINE TARTRATE
  10. ASPIRIN [Concomitant]
     Active Substance: ASPIRIN
  11. BACTRIM [Concomitant]
     Active Substance: SULFAMETHOXAZOLE\TRIMETHOPRIM
  12. VITAMIN D3 [Concomitant]
     Active Substance: CHOLECALCIFEROL
  13. VITAMIN K [Concomitant]
     Active Substance: PHYTONADIONE
  14. LAMICTAL [Concomitant]
     Active Substance: LAMOTRIGINE
  15. ZOLPIDEM [Concomitant]
     Active Substance: ZOLPIDEM TARTRATE
  16. TOLTERODINE [Concomitant]
     Active Substance: TOLTERODINE
  17. LEVOTHROID [Concomitant]
     Active Substance: LEVOTHYROXINE SODIUM
  18. FINASTERIDE [Concomitant]
     Active Substance: FINASTERIDE
  19. BACLOFEN [Concomitant]
     Active Substance: BACLOFEN
  20. GABAPENTIN [Concomitant]
     Active Substance: GABAPENTIN
  21. VITAMIN B12 [Concomitant]
     Active Substance: CYANOCOBALAMIN
  22. CLONAZEPAM [Concomitant]
     Active Substance: CLONAZEPAM
  23. CYMBALTA [Concomitant]
     Active Substance: DULOXETINE HYDROCHLORIDE
  24. OMEPRAZOLE [Concomitant]
     Active Substance: OMEPRAZOLE
  25. DIAZEPAM [Concomitant]
     Active Substance: DIAZEPAM
  26. HYDROMORPHONE [Concomitant]
     Active Substance: HYDROMORPHONE
  27. TAMSULOSIN [Concomitant]
     Active Substance: TAMSULOSIN

REACTIONS (9)
  - Rhabdomyolysis [Unknown]
  - Hallucination [Unknown]
  - Seizure [Unknown]
  - Fall [Unknown]
  - Lower limb fracture [Unknown]
  - Pain in extremity [Unknown]
  - Hypoaesthesia [Unknown]
  - Tissue injury [Unknown]
  - Paraesthesia [Unknown]
